FAERS Safety Report 19080648 (Version 1)
Quarter: 2021Q1

REPORT INFORMATION
  Report Type: Spontaneous
  Country: US (occurrence: US)
  Receive Date: 20210331
  Receipt Date: 20210331
  Transmission Date: 20210420
  Serious: Yes (Life-Threatening, Hospitalization, Other)
  Sender: FDA-Public Use
  Company Number: US-PURDUE-USA-2021-0238898

PATIENT
  Age: 17 Year
  Sex: Male

DRUGS (1)
  1. MORPHINE SULFATE (SIMILAR TO NDA 19?516) [Suspect]
     Active Substance: MORPHINE SULFATE
     Indication: PRODUCT USED FOR UNKNOWN INDICATION
     Dosage: UNK
     Route: 065

REACTIONS (8)
  - Hypoxia [Recovered/Resolved]
  - Unresponsive to stimuli [Recovered/Resolved]
  - Cardiogenic shock [Recovered/Resolved]
  - Hypercapnia [Recovered/Resolved]
  - Cardiac arrest [Recovered/Resolved]
  - Bradypnoea [Recovered/Resolved]
  - Overdose [Recovered/Resolved]
  - Cardiac dysfunction [Recovered/Resolved]
